FAERS Safety Report 5209075-3 (Version None)
Quarter: 2007Q1

REPORT INFORMATION
  Report Type: 
  Country: None (occurrence: None)
  Receive Date: 20070116
  Receipt Date: 20070109
  Transmission Date: 20070707
  Serious: Yes (Hospitalization)
  Sender: FDA-Public Use
  Company Number: 2007CG00057

PATIENT
  Age: 88 Year
  Sex: Male
  Weight: 72 kg

DRUGS (6)
  1. ZESTRIL [Suspect]
     Route: 048
  2. MONICOR [Interacting]
     Route: 048
  3. MOLSIDOMINE [Interacting]
     Route: 048
  4. SOTALOL HCL [Interacting]
     Route: 048
  5. CIPRALAN [Concomitant]
     Route: 048
  6. PREVISCAN [Concomitant]
     Route: 048

REACTIONS (3)
  - DRUG INTERACTION [None]
  - MALAISE [None]
  - ORTHOSTATIC HYPOTENSION [None]
